FAERS Safety Report 9701180 (Version 1)
Quarter: 2013Q4

REPORT INFORMATION
  Report Type: Spontaneous
  Country: US (occurrence: US)
  Receive Date: 20131121
  Receipt Date: 20131121
  Transmission Date: 20140711
  Serious: No
  Sender: FDA-Public Use
  Company Number: US-GILEAD-2008-0016020

PATIENT
  Sex: Female
  Weight: 72.57 kg

DRUGS (9)
  1. LETAIRIS [Suspect]
     Indication: PULMONARY ARTERIAL HYPERTENSION
     Route: 048
     Dates: start: 20080307
  2. LASIX [Concomitant]
     Route: 048
  3. PROTONIX [Concomitant]
     Route: 048
  4. COUMADIN [Concomitant]
     Route: 048
  5. PROCARDIA [Concomitant]
     Route: 048
  6. REVATIO [Concomitant]
     Route: 048
  7. ATENOLOL [Concomitant]
     Route: 048
  8. SIMVASTATIN [Concomitant]
     Route: 048
  9. LEVOXYL [Concomitant]
     Route: 048

REACTIONS (1)
  - Dyspnoea [Unknown]
